FAERS Safety Report 4745262-6 (Version None)
Quarter: 2005Q3

REPORT INFORMATION
  Report Type: 
  Country: None (occurrence: None)
  Receive Date: 20050812
  Receipt Date: 20050803
  Transmission Date: 20060218
  Serious: Yes (Congenital Anomaly, Other)
  Sender: FDA-Public Use
  Company Number: 2005110500

PATIENT
  Sex: Female

DRUGS (3)
  1. ATARAX [Suspect]
     Indication: ANXIETY
     Dosage: 25 MG, PLACENTAL
     Dates: start: 20041014, end: 20041125
  2. ATARAX [Suspect]
     Indication: INSOMNIA
     Dosage: 25 MG, PLACENTAL
     Dates: start: 20041014, end: 20041125
  3. FLUOXETINE [Suspect]
     Indication: ILL-DEFINED DISORDER
     Dosage: PLACENTAL
     Dates: start: 20041014, end: 20041106

REACTIONS (6)
  - DRUG EXPOSURE DURING PREGNANCY [None]
  - GASTROOESOPHAGEAL REFLUX DISEASE [None]
  - JOINT DISLOCATION [None]
  - NEONATAL DISORDER [None]
  - PREMATURE BABY [None]
  - PREMATURE LABOUR [None]
